FAERS Safety Report 26133330 (Version 1)
Quarter: 2025Q4

REPORT INFORMATION
  Report Type: Spontaneous
  Country: US (occurrence: US)
  Receive Date: 20251209
  Receipt Date: 20251209
  Transmission Date: 20260118
  Serious: No
  Sender: SANDOZ
  Company Number: US-SANDOZ-SDZ2025US092227

PATIENT
  Sex: Male

DRUGS (1)
  1. GLATOPA [Suspect]
     Active Substance: GLATIRAMER ACETATE
     Indication: Product used for unknown indication
     Dosage: 40MG/ML 12LISY 40MG/ML5
     Route: 065

REACTIONS (3)
  - Circumstance or information capable of leading to device use error [Unknown]
  - Device failure [Unknown]
  - Device breakage [Unknown]

NARRATIVE: CASE EVENT DATE: 20251204
